FAERS Safety Report 14161789 (Version 1)
Quarter: 2017Q4

REPORT INFORMATION
  Report Type: Spontaneous
  Country: US (occurrence: None)
  Receive Date: 20171105
  Receipt Date: 20171105
  Transmission Date: 20180321
  Serious: No
  Sender: FDA-Public Use
  Company Number: None

PATIENT
  Sex: Female

DRUGS (1)
  1. IBRANCE [Suspect]
     Active Substance: PALBOCICLIB
     Indication: BREAST CANCER FEMALE
     Dosage: 125MG DAILY X 21 DAYS, THEN 7 DAYS OFF PO
     Route: 048
     Dates: start: 20160901

REACTIONS (4)
  - Blister [None]
  - Nausea [None]
  - Pain [None]
  - Headache [None]
